FAERS Safety Report 9229035 (Version 1)
Quarter: 2013Q2

REPORT INFORMATION
  Report Type: Spontaneous
  Country: FR (occurrence: FR)
  Receive Date: 20130412
  Receipt Date: 20130412
  Transmission Date: 20140414
  Serious: Yes (Other)
  Sender: FDA-Public Use
  Company Number: FR-WATSON-2013-06412

PATIENT
  Age: 56 Year
  Sex: Female

DRUGS (1)
  1. GEMCITABINE (UNKNOWN) [Suspect]
     Indication: BLADDER CANCER
     Dosage: 1000 MG/M2, UNKNOWN
     Route: 042
     Dates: start: 20120723, end: 20121030

REACTIONS (3)
  - Skin mass [Recovered/Resolved]
  - Anaemia [Unknown]
  - Pruritus [Unknown]
